FAERS Safety Report 8916920 (Version 1)
Quarter: 2012Q4

REPORT INFORMATION
  Report Type: 
  Country: US (occurrence: US)
  Receive Date: 20121120
  Receipt Date: 20121120
  Transmission Date: 20130627
  Serious: No
  Sender: FDA-Public Use
  Company Number: US-PFIZER INC-2012290243

PATIENT
  Sex: Female

DRUGS (2)
  1. LYRICA [Suspect]
     Indication: BURNING SENSATION
     Dosage: 75 mg, 2x/day
     Route: 048
     Dates: start: 20121106
  2. LYRICA [Suspect]
     Dosage: 75 mg, as needed
     Route: 048
     Dates: end: 201211

REACTIONS (4)
  - Vision blurred [Unknown]
  - Off label use [Unknown]
  - Inappropriate schedule of drug administration [Unknown]
  - Therapeutic response unexpected [Unknown]
